FAERS Safety Report 12769041 (Version 1)
Quarter: 2016Q3

REPORT INFORMATION
  Report Type: Spontaneous
  Country: IT (occurrence: IT)
  Receive Date: 20160921
  Receipt Date: 20160921
  Transmission Date: 20161109
  Serious: Yes (Hospitalization)
  Sender: FDA-Public Use
  Company Number: IT-009507513-1609ITA006928

PATIENT
  Age: 41 Year
  Sex: Female

DRUGS (1)
  1. NUVARING [Suspect]
     Active Substance: ETHINYL ESTRADIOL\ETONOGESTREL
     Indication: INTRA-UTERINE CONTRACEPTIVE DEVICE
     Dosage: 1 DF, CYCLICAL
     Route: 067
     Dates: start: 201408, end: 201608

REACTIONS (2)
  - Splenic thrombosis [Recovering/Resolving]
  - Portal vein thrombosis [Recovering/Resolving]

NARRATIVE: CASE EVENT DATE: 20160823
